FAERS Safety Report 6396001-7 (Version None)
Quarter: 2009Q4

REPORT INFORMATION
  Report Type: 
  Country: None (occurrence: None)
  Receive Date: 20091009
  Receipt Date: 20090930
  Transmission Date: 20100525
  Serious: Yes (Other)
  Sender: FDA-Public Use
  Company Number: CHPA2009US19555

PATIENT

DRUGS (1)
  1. MAALOX MS TOTAL STOMACH RELIEF (NCH) [Suspect]
     Indication: PEPTIC ULCER
     Route: 048

REACTIONS (4)
  - FAECES DISCOLOURED [None]
  - HAEMORRHAGE [None]
  - MELAENA [None]
  - VISUAL ACUITY REDUCED [None]
